FAERS Safety Report 6815727-1 (Version None)
Quarter: 2010Q3

REPORT INFORMATION
  Report Type: 
  Country: None (occurrence: None)
  Receive Date: 20100702
  Receipt Date: 20100618
  Transmission Date: 20110219
  Serious: Yes (Other)
  Sender: FDA-Public Use
  Company Number: BE-GENENTECH-282001

PATIENT
  Sex: Male
  Weight: 89 kg

DRUGS (4)
  1. RITUXIMAB [Suspect]
     Indication: RHEUMATOID ARTHRITIS
     Dosage: 1000 MG, UNK
     Route: 042
     Dates: start: 20070309, end: 20080424
  2. METHOTREXATE [Concomitant]
     Indication: RHEUMATOID ARTHRITIS
     Dosage: 15 MG, 1/WEEK
     Route: 048
     Dates: start: 20060301
  3. MEDROL [Concomitant]
     Indication: RHEUMATOID ARTHRITIS
     Dosage: UNK
     Route: 048
     Dates: start: 20060301
  4. INDOCIN [Concomitant]
     Indication: RHEUMATOID ARTHRITIS
     Dosage: 50 MG, TID
     Route: 048
     Dates: start: 20060101

REACTIONS (2)
  - INFECTION [None]
  - TUBERCULOSIS [None]
